FAERS Safety Report 11073415 (Version 1)
Quarter: 2015Q2

REPORT INFORMATION
  Report Type: Spontaneous
  Country: US (occurrence: US)
  Receive Date: 20150428
  Receipt Date: 20150428
  Transmission Date: 20150821
  Serious: Yes (Other)
  Sender: FDA-Public Use
  Company Number: US-BAUSCH-BL-2015-002196

PATIENT
  Sex: Female

DRUGS (2)
  1. XENAZINE [Suspect]
     Active Substance: TETRABENAZINE
     Indication: DYSTONIA
     Route: 048
     Dates: start: 2010
  2. XENAZINE [Suspect]
     Active Substance: TETRABENAZINE
     Indication: DYSKINESIA

REACTIONS (4)
  - Respiratory tract congestion [Unknown]
  - Renal cancer [Unknown]
  - Oropharyngeal pain [Unknown]
  - Off label use [Not Recovered/Not Resolved]

NARRATIVE: CASE EVENT DATE: 2010
